FAERS Safety Report 15061377 (Version 1)
Quarter: 2018Q2

REPORT INFORMATION
  Report Type: Spontaneous
  Country: US (occurrence: US)
  Receive Date: 20180625
  Receipt Date: 20180625
  Transmission Date: 20180711
  Serious: No
  Sender: FDA-Public Use
  Company Number: US-ROCHE-1935610

PATIENT

DRUGS (1)
  1. XELODA [Suspect]
     Active Substance: CAPECITABINE
     Indication: PRODUCT USED FOR UNKNOWN INDICATION
     Dosage: UNKNOWN
     Route: 065

REACTIONS (7)
  - Vision blurred [Unknown]
  - Reading disorder [Unknown]
  - Lacrimation increased [Unknown]
  - Ill-defined disorder [Unknown]
  - Therapy change [Unknown]
  - Visual acuity reduced [Unknown]
  - Eye pruritus [Unknown]
